FAERS Safety Report 20118964 (Version 1)
Quarter: 2021Q4

REPORT INFORMATION
  Report Type: Spontaneous
  Country: CN (occurrence: CN)
  Receive Date: 20211126
  Receipt Date: 20211126
  Transmission Date: 20220303
  Serious: Yes (Other)
  Sender: FDA-Public Use
  Company Number: CN-009507513-2111CHN007106

PATIENT
  Age: 39 Year
  Sex: Male

DRUGS (16)
  1. CASPOFUNGIN ACETATE [Suspect]
     Active Substance: CASPOFUNGIN ACETATE
     Indication: Anti-infective therapy
     Dosage: 50 MILLIGRAM, QD
     Route: 041
     Dates: start: 201912, end: 20191219
  2. POLYMYXIN B SULFATE [Suspect]
     Active Substance: POLYMYXIN B SULFATE
     Dosage: 750000 INTERNATIONAL UNIT, Q12H
     Dates: start: 20191217, end: 20191219
  3. CEFOPERAZONE SODIUM\SULBACTAM SODIUM [Suspect]
     Active Substance: CEFOPERAZONE SODIUM\SULBACTAM SODIUM
     Dosage: 2 GRAM, Q6H
     Dates: start: 20191217, end: 20191219
  4. NOREPINEPHRINE [Concomitant]
     Active Substance: NOREPINEPHRINE
     Dosage: 2.8~3.5 MCG/(KG-H) CONTINUOUSLY PUMPED
     Dates: start: 201912
  5. MIDAZOLAM [Concomitant]
     Active Substance: MIDAZOLAM
     Dosage: 0.16~0.24 MG/(KG-H)
     Route: 042
     Dates: start: 201912
  6. DEXMEDETOMIDINE HYDROCHLORIDE [Concomitant]
     Active Substance: DEXMEDETOMIDINE HYDROCHLORIDE
     Dosage: 0.46~0.69 MCG/(KG-H)
     Route: 042
     Dates: start: 201912
  7. MORPHINE HYDROCHLORIDE [Concomitant]
     Active Substance: MORPHINE HYDROCHLORIDE
     Dosage: 0.069~0.086 MG/(KG?H)
     Route: 042
     Dates: start: 201912
  8. TIGECYCLINE [Concomitant]
     Active Substance: TIGECYCLINE
     Indication: Anti-infective therapy
     Dosage: 100 MILLIGRAM, Q12H
     Route: 041
     Dates: start: 201912, end: 20191217
  9. SODIUM CHLORIDE [Concomitant]
     Active Substance: SODIUM CHLORIDE
     Dosage: UNK, Q12H
     Route: 041
     Dates: start: 201912
  10. SODIUM CHLORIDE [Concomitant]
     Active Substance: SODIUM CHLORIDE
     Dosage: UNK, QD
     Route: 041
     Dates: start: 201912
  11. SODIUM CHLORIDE [Concomitant]
     Active Substance: SODIUM CHLORIDE
     Dosage: UNK, Q6H
     Dates: start: 20191217
  12. SODIUM CHLORIDE [Concomitant]
     Active Substance: SODIUM CHLORIDE
     Dosage: UNK, Q12H
     Dates: start: 20191217
  13. POSACONAZOLE [Concomitant]
     Active Substance: POSACONAZOLE
     Indication: Anti-infective therapy
     Dosage: 10 MILLILITER, BID, VIA TUBE FEEDING
     Dates: start: 201912, end: 20191217
  14. METHYLPREDNISOLONE SODIUM SUCCINATE [Concomitant]
     Active Substance: METHYLPREDNISOLONE SODIUM SUCCINATE
     Dosage: 80 MILLIGRAM, Q12H
     Route: 042
  15. GLUTATHIONE REDUCED [Concomitant]
     Dosage: 1200 MILLIGRAM, QD
     Route: 041
     Dates: start: 201912
  16. DEXTROSE [Concomitant]
     Active Substance: DEXTROSE
     Dosage: UNK, QD
     Route: 041
     Dates: start: 201912

REACTIONS (2)
  - Drug-induced liver injury [Recovered/Resolved]
  - Product use in unapproved indication [Unknown]

NARRATIVE: CASE EVENT DATE: 20191201
